FAERS Safety Report 19681227 (Version 1)
Quarter: 2021Q3

REPORT INFORMATION
  Report Type: Spontaneous
  Country: US (occurrence: US)
  Receive Date: 20210810
  Receipt Date: 20210810
  Transmission Date: 20211014
  Serious: No
  Sender: FDA-Public Use
  Company Number: US-IGSA-BIG0011041

PATIENT
  Age: 51 Year
  Sex: Male

DRUGS (2)
  1. GAMUNEX?C [Suspect]
     Active Substance: HUMAN IMMUNOGLOBULIN G
     Indication: AUTONOMIC NEUROPATHY
     Dosage: UNK UNK, Q.4WK.
     Route: 042
  2. DUPIXENT [Concomitant]
     Active Substance: DUPILUMAB
     Indication: ASTHMA

REACTIONS (2)
  - Malaise [Recovered/Resolved]
  - Headache [Recovered/Resolved]
